FAERS Safety Report 16227436 (Version 1)
Quarter: 2019Q2

REPORT INFORMATION
  Report Type: Spontaneous
  Country: IT (occurrence: IT)
  Receive Date: 20190423
  Receipt Date: 20190423
  Transmission Date: 20190711
  Serious: Yes (Other)
  Sender: FDA-Public Use
  Company Number: IT-TEVA-2019-IT-1039149

PATIENT
  Sex: Male

DRUGS (1)
  1. COPAXONE [Suspect]
     Active Substance: GLATIRAMER ACETATE
     Route: 058

REACTIONS (9)
  - Malaise [Unknown]
  - Suicidal ideation [Unknown]
  - Pain of skin [Unknown]
  - Asthma [Unknown]
  - Asthenia [Unknown]
  - Drug intolerance [Unknown]
  - Confusional state [Unknown]
  - Therapy change [Unknown]
  - Amnesia [Unknown]
